FAERS Safety Report 7690404-6 (Version None)
Quarter: 2011Q3

REPORT INFORMATION
  Report Type: 
  Country: None (occurrence: None)
  Receive Date: 20110812
  Receipt Date: 20110804
  Transmission Date: 20111222
  Serious: Yes (Other)
  Sender: FDA-Public Use
  Company Number: 2011-00850

PATIENT
  Age: 33 Year
  Sex: Female
  Weight: 62.5964 kg

DRUGS (2)
  1. LEVETIRACETAM [Suspect]
     Indication: EPILEPSY
     Dosage: 1500 MG (500 MG, 3 IN 1 D),PER ORAL
     Route: 048
     Dates: start: 20110501, end: 20110701
  2. OXCARBAZEPINE (TRILEPTAL) (TABLETS) [Concomitant]

REACTIONS (6)
  - DIZZINESS [None]
  - LETHARGY [None]
  - PALPITATIONS [None]
  - CONVULSION [None]
  - FATIGUE [None]
  - PRODUCT SUBSTITUTION ISSUE [None]
